FAERS Safety Report 8220363-9 (Version None)
Quarter: 2012Q1

REPORT INFORMATION
  Report Type: 
  Country: None (occurrence: None)
  Receive Date: 20120320
  Receipt Date: 20110505
  Transmission Date: 20120608
  Serious: No
  Sender: FDA-Public Use
  Company Number: US-GLAXOSMITHKLINE-A0926147A

PATIENT
  Age: 4 Year
  Sex: Male

DRUGS (2)
  1. ALLEGRA [Concomitant]
  2. VUSION [Suspect]
     Indication: ACCIDENTAL EXPOSURE
     Route: 065
     Dates: start: 20110505

REACTIONS (1)
  - ACCIDENTAL EXPOSURE [None]
